FAERS Safety Report 5572858-4 (Version None)
Quarter: 2007Q4

REPORT INFORMATION
  Report Type: 
  Country: None (occurrence: None)
  Receive Date: 20071223
  Receipt Date: 20071220
  Transmission Date: 20080405
  Serious: Yes (Hospitalization)
  Sender: FDA-Public Use
  Company Number: PHEH2007US15644

PATIENT
  Sex: Female

DRUGS (1)
  1. DIOVAN [Suspect]
     Indication: HYPERTENSION
     Dosage: UNK, UNK

REACTIONS (4)
  - ABDOMINAL DISTENSION [None]
  - ABDOMINAL MASS [None]
  - CYSTITIS [None]
  - URINARY TRACT INFECTION [None]
